FAERS Safety Report 10568276 (Version 1)
Quarter: 2014Q4

REPORT INFORMATION
  Report Type: Report from Study
  Country: BR (occurrence: BR)
  Receive Date: 20141106
  Receipt Date: 20141106
  Transmission Date: 20150529
  Serious: Yes (Other)
  Sender: FDA-Public Use
  Company Number: BR-NOVOPROD-427242

PATIENT
  Sex: Female

DRUGS (1)
  1. LIRAGLUTIDE FLEXPEN [Suspect]
     Active Substance: LIRAGLUTIDE
     Indication: DIABETES MELLITUS
     Dosage: UNK
     Route: 065

REACTIONS (5)
  - Gastrointestinal infection [Unknown]
  - Hypoglycaemia [Unknown]
  - Diarrhoea [Unknown]
  - Pyrexia [Unknown]
  - Vomiting [Unknown]
